FAERS Safety Report 8106484-X (Version None)
Quarter: 2012Q1

REPORT INFORMATION
  Report Type: 
  Country: None (occurrence: None)
  Receive Date: 20120130
  Receipt Date: 20120124
  Transmission Date: 20120608
  Serious: Yes (Other)
  Sender: FDA-Public Use
  Company Number: A0962950A

PATIENT
  Age: 8 Month
  Sex: 0

DRUGS (1)
  1. PROPRANOLOL HYDROCHLORIDE [Suspect]
     Indication: HAEMANGIOMA
     Dosage: 2.5 MG/KG / PER DAY / ORAL
     Route: 048

REACTIONS (1)
  - HYPOGLYCAEMIC SEIZURE [None]
